FAERS Safety Report 16635216 (Version 1)
Quarter: 2019Q3

REPORT INFORMATION
  Report Type: Spontaneous
  Country: US (occurrence: US)
  Receive Date: 20190726
  Receipt Date: 20190726
  Transmission Date: 20191004
  Serious: No
  Sender: FDA-Public Use
  Company Number: US-ACCORD-070866

PATIENT
  Age: 72 Year
  Sex: Female
  Weight: 73.48 kg

DRUGS (2)
  1. ESTROVEN [Concomitant]
     Active Substance: DIETARY SUPPLEMENT
  2. LETROZOLE. [Suspect]
     Active Substance: LETROZOLE
     Indication: BREAST CANCER STAGE III
     Dosage: 2.5 MG ONCE DAILY STARTED  6 WEEKS AGO
     Route: 048

REACTIONS (5)
  - Dysmenorrhoea [Unknown]
  - Metrorrhagia [Unknown]
  - Weight increased [Unknown]
  - Somnolence [Unknown]
  - Fatigue [Unknown]
